FAERS Safety Report 4772351-2 (Version None)
Quarter: 2005Q3

REPORT INFORMATION
  Report Type: 
  Country: None (occurrence: None)
  Receive Date: 20050916
  Receipt Date: 20050903
  Transmission Date: 20060218
  Serious: Yes (Other)
  Sender: FDA-Public Use
  Company Number: 2005124797

PATIENT
  Age: 18 Year
  Sex: Female
  Weight: 62.1428 kg

DRUGS (1)
  1. SUDAFED COLD AND COUGH (PARACETAMOL, PSEUDOEPHEDRINE, DEXTROMETHORPHAN [Suspect]
     Indication: NASAL CONGESTION
     Dosage: 1 LIQUIDCAP ONCE, ORAL
     Route: 048
     Dates: start: 20050903, end: 20050903

REACTIONS (4)
  - MYDRIASIS [None]
  - OEDEMA PERIPHERAL [None]
  - RASH [None]
  - TREMOR [None]
